FAERS Safety Report 7772940-7 (Version None)
Quarter: 2011Q3

REPORT INFORMATION
  Report Type: 
  Country: None (occurrence: None)
  Receive Date: 20110922
  Receipt Date: 20100823
  Transmission Date: 20111222
  Serious: No
  Sender: FDA-Public Use
  Company Number: US-ASTRAZENECA-2010SE39588

PATIENT
  Age: 46 Year
  Sex: Female
  Weight: 97.5 kg

DRUGS (1)
  1. SEROQUEL XR [Suspect]
     Indication: BIPOLAR I DISORDER
     Route: 048
     Dates: start: 20100527, end: 20100809

REACTIONS (2)
  - INSOMNIA [None]
  - DRUG DOSE OMISSION [None]
